FAERS Safety Report 21064047 (Version 1)
Quarter: 2022Q3

REPORT INFORMATION
  Report Type: Spontaneous
  Country: US (occurrence: US)
  Receive Date: 20220711
  Receipt Date: 20220711
  Transmission Date: 20221026
  Serious: No
  Sender: FDA-Public Use
  Company Number: US-CIPLA LTD.-2022US03337

PATIENT
  Sex: Female

DRUGS (2)
  1. ALBUTEROL [Suspect]
     Active Substance: ALBUTEROL
     Indication: Atypical pneumonia
     Dosage: UNK, 1 TO 2 PUFFS EVERY 4 TO 6 HOURS
     Route: 065
     Dates: start: 20220520
  2. DOXYCYCLINE [Concomitant]
     Active Substance: DOXYCYCLINE
     Indication: Sinusitis
     Dosage: 1 DOSAGE FORM, BID
     Route: 065
     Dates: start: 20220520

REACTIONS (2)
  - Nervousness [Unknown]
  - Wrong technique in product usage process [Unknown]

NARRATIVE: CASE EVENT DATE: 20220520
